FAERS Safety Report 8516191-7 (Version None)
Quarter: 2012Q3

REPORT INFORMATION
  Report Type: 
  Country: None (occurrence: None)
  Receive Date: 20120717
  Receipt Date: 20120711
  Transmission Date: 20120928
  Serious: Yes (Other)
  Sender: FDA-Public Use
  Company Number: FR-ROCHE-1066324

PATIENT
  Sex: Female
  Weight: 49 kg

DRUGS (23)
  1. LEVOTHYROXINE SODIUM [Concomitant]
     Indication: HYPOTHYROIDISM
     Dates: start: 20080101
  2. FOLIC ACID [Concomitant]
     Indication: ANAEMIA
     Dates: start: 20120120, end: 20120223
  3. KAYEXALATE [Concomitant]
     Indication: PROPHYLAXIS
     Dates: start: 20120221, end: 20120223
  4. TAZOBACTAM [Concomitant]
     Indication: INFECTION
     Dates: start: 20120221, end: 20120224
  5. MABTHERA [Suspect]
     Dosage: LAST DOSE PRIOR TO SAE: 22 MAR 2012
     Route: 058
     Dates: start: 20120418
  6. MABTHERA [Suspect]
     Dosage: LAST DOSE PRIOR TO SAE: 22 MAR 2012
     Route: 042
     Dates: start: 20120223
  7. MICONAZOLE [Concomitant]
     Dates: start: 20120222, end: 20120418
  8. MABTHERA [Suspect]
     Route: 058
     Dates: start: 20120711
  9. VITAMIN B-12 [Concomitant]
     Indication: ANAEMIA
     Dates: start: 20120120, end: 20120223
  10. MABTHERA [Suspect]
     Indication: B-CELL LYMPHOMA
     Dosage: LAST DOSE PRIOR TO SAE: 22 MAR 2012
     Route: 058
     Dates: start: 20120322
  11. ATARAX [Concomitant]
     Indication: INSOMNIA
     Dates: start: 20120222
  12. SOLU-MEDROL [Concomitant]
     Indication: PYREXIA
     Dates: start: 20120223, end: 20120223
  13. ACETAMINOPHEN [Concomitant]
     Indication: PYREXIA
     Dates: start: 20120221, end: 20120418
  14. VALACYCLOVIR HYDROCHLORIDE [Concomitant]
     Indication: INFECTION PROPHYLAXIS
     Dates: start: 20120222
  15. BACTRIM DS [Concomitant]
     Indication: INFECTION PROPHYLAXIS
     Dosage: DOSE GIVEN AS 2 SATURDAY-SUNDAY
     Dates: start: 20120222
  16. LEVOFLOXACIN [Concomitant]
     Indication: INFECTION PROPHYLAXIS
     Dates: start: 20120224, end: 20120225
  17. MABTHERA [Suspect]
     Route: 058
     Dates: start: 20120613
  18. DURAGESIC-100 [Concomitant]
     Indication: PAIN
     Dosage: 1 AS NEEDED
     Dates: start: 20110601
  19. MABTHERA [Suspect]
     Route: 058
     Dates: start: 20120515
  20. AMIKACIN [Concomitant]
     Indication: INFECTION
     Dates: start: 20120221, end: 20120223
  21. ACETAMINOPHEN [Concomitant]
     Indication: PYREXIA
     Dates: start: 20120223, end: 20120223
  22. POLARAMINE [Concomitant]
     Indication: PYREXIA
     Dates: start: 20120223, end: 20120223
  23. CALCIPARINE [Concomitant]
     Indication: PHLEBITIS
     Dates: start: 20120220, end: 20120223

REACTIONS (1)
  - INJECTION SITE PAIN [None]
